FAERS Safety Report 4558398-X (Version None)
Quarter: 2005Q1

REPORT INFORMATION
  Report Type: 
  Country: None (occurrence: None)
  Receive Date: 20050121
  Receipt Date: 20050113
  Transmission Date: 20050727
  Serious: Yes (Other)
  Sender: FDA-Public Use
  Company Number: PHFR2005GB00561

PATIENT
  Sex: Female

DRUGS (1)
  1. TEGRETOL [Suspect]
     Route: 065
     Dates: start: 20040101

REACTIONS (1)
  - GLAUCOMA [None]
